FAERS Safety Report 5606373-6 (Version None)
Quarter: 2008Q1

REPORT INFORMATION
  Report Type: 
  Country: None (occurrence: None)
  Receive Date: 20080129
  Receipt Date: 20070803
  Transmission Date: 20080703
  Serious: No
  Sender: FDA-Public Use
  Company Number: A0668137A

PATIENT
  Sex: Female

DRUGS (5)
  1. WELLBUTRIN [Suspect]
     Indication: DEPRESSION
     Dosage: 18.75MG PER DAY
     Route: 048
     Dates: start: 20070723, end: 20070724
  2. REMERON [Concomitant]
  3. TOPAMAX [Concomitant]
  4. ATIVAN [Concomitant]
  5. LYRICA [Concomitant]

REACTIONS (1)
  - RASH [None]
